FAERS Safety Report 17015156 (Version 1)
Quarter: 2019Q4

REPORT INFORMATION
  Report Type: Spontaneous
  Country: GB (occurrence: GB)
  Receive Date: 20191111
  Receipt Date: 20191111
  Transmission Date: 20200122
  Serious: Yes (Other)
  Sender: FDA-Public Use
  Company Number: GB-ACCORD-160076

PATIENT
  Age: 85 Year
  Sex: Female

DRUGS (14)
  1. ALLOPURINOL. [Concomitant]
     Active Substance: ALLOPURINOL
     Dates: start: 20171120
  2. ATENOLOL/ATENOLOL HYDROCHLORIDE [Concomitant]
     Dosage: IN THE MORNING
     Dates: start: 20171120
  3. ALENDRONATE SODIUM/ALENDRONIC ACID [Concomitant]
     Dates: start: 20180124
  4. PARACETAMOL [Concomitant]
     Active Substance: ACETAMINOPHEN
     Dosage: TAKE 1 OR 2, 4 TIMES/DAY
     Dates: start: 20180410
  5. LISINOPRIL. [Suspect]
     Active Substance: LISINOPRIL
     Indication: PRODUCT USED FOR UNKNOWN INDICATION
     Dates: start: 20171120
  6. ACETYLSALICYLIC ACID [Concomitant]
     Active Substance: ASPIRIN
     Dates: start: 20171120, end: 20180321
  7. CYANOCOBALAMIN/CYANOCOBALAMIN ZINC TANNATE/CYANOCOBALAMIN-TANNIN COMPLEX [Concomitant]
     Dates: start: 20180109
  8. BENZYDAMINE [Concomitant]
     Active Substance: BENZYDAMINE
     Dosage: APPLY AS DIRECTED
     Dates: start: 20180508
  9. APIXABAN [Concomitant]
     Active Substance: APIXABAN
     Dates: start: 20180321
  10. ATORVASTATIN [Concomitant]
     Active Substance: ATORVASTATIN
     Dates: start: 20180321
  11. LAXIDO [Concomitant]
     Active Substance: POLYETHYLENE GLYCOL 3350\POTASSIUM CHLORIDE\SODIUM BICARBONATE\SODIUM CHLORIDE
     Dosage: TAKE 2 SACHETS A DAY
     Dates: start: 20171129, end: 20180508
  12. ADCAL [Concomitant]
     Dates: start: 20180124
  13. FUROSEMIDE. [Concomitant]
     Active Substance: FUROSEMIDE
     Dosage: EACH MORNING
     Dates: start: 20171120
  14. LACTULOSE. [Concomitant]
     Active Substance: LACTULOSE
     Dates: start: 20171120, end: 20180508

REACTIONS (2)
  - Lip swelling [Recovering/Resolving]
  - Mouth ulceration [Unknown]

NARRATIVE: CASE EVENT DATE: 20180514
